FAERS Safety Report 23346473 (Version 1)
Quarter: 2023Q4

REPORT INFORMATION
  Report Type: Spontaneous
  Country: GB (occurrence: GB)
  Receive Date: 20231228
  Receipt Date: 20231228
  Transmission Date: 20240110
  Serious: Yes (Other)
  Sender: FDA-Public Use
  Company Number: GB-MHRA-MED-202304230708537380-PVGKR

PATIENT
  Sex: Male
  Weight: 90 kg

DRUGS (2)
  1. ATORVASTATIN [Suspect]
     Active Substance: ATORVASTATIN
     Indication: Blood cholesterol increased
     Dosage: 20MG AT NIGHT;
     Route: 065
     Dates: start: 20230301, end: 20230422
  2. VITAMIN D SUBSTANCES [Concomitant]
     Indication: Vitamin D deficiency
     Dosage: UNK
     Route: 065
     Dates: start: 2022

REACTIONS (1)
  - Abnormal dreams [Not Recovered/Not Resolved]

NARRATIVE: CASE EVENT DATE: 20230420
